FAERS Safety Report 20893475 (Version 6)
Quarter: 2024Q3

REPORT INFORMATION
  Report Type: Report from Study
  Country: CA (occurrence: CA)
  Receive Date: 20220531
  Receipt Date: 20240807
  Transmission Date: 20241017
  Serious: Yes (Other)
  Sender: ROCHE
  Company Number: CA-002147023-PHHY2015CA034068

PATIENT
  Age: 40 Year
  Sex: Female

DRUGS (59)
  1. XOLAIR [Suspect]
     Active Substance: OMALIZUMAB
     Indication: Chronic spontaneous urticaria
     Route: 058
     Dates: start: 20150317
  2. XOLAIR [Suspect]
     Active Substance: OMALIZUMAB
     Route: 058
     Dates: start: 20150414
  3. XOLAIR [Suspect]
     Active Substance: OMALIZUMAB
     Route: 058
     Dates: start: 20160303
  4. XOLAIR [Suspect]
     Active Substance: OMALIZUMAB
     Route: 058
     Dates: start: 20160316
  5. XOLAIR [Suspect]
     Active Substance: OMALIZUMAB
     Route: 058
     Dates: start: 20160407
  6. XOLAIR [Suspect]
     Active Substance: OMALIZUMAB
     Route: 058
     Dates: start: 20160428
  7. XOLAIR [Suspect]
     Active Substance: OMALIZUMAB
     Route: 058
     Dates: start: 20160609
  8. XOLAIR [Suspect]
     Active Substance: OMALIZUMAB
     Route: 058
     Dates: start: 20160721, end: 20160721
  9. XOLAIR [Suspect]
     Active Substance: OMALIZUMAB
     Route: 058
     Dates: start: 20160923
  10. XOLAIR [Suspect]
     Active Substance: OMALIZUMAB
     Route: 058
     Dates: start: 20161222
  11. XOLAIR [Suspect]
     Active Substance: OMALIZUMAB
     Route: 058
     Dates: start: 20170316
  12. XOLAIR [Suspect]
     Active Substance: OMALIZUMAB
     Route: 058
     Dates: start: 20170427
  13. XOLAIR [Suspect]
     Active Substance: OMALIZUMAB
     Route: 058
     Dates: start: 20170608
  14. XOLAIR [Suspect]
     Active Substance: OMALIZUMAB
     Route: 058
     Dates: start: 20170720
  15. XOLAIR [Suspect]
     Active Substance: OMALIZUMAB
     Route: 058
     Dates: start: 20170830
  16. XOLAIR [Suspect]
     Active Substance: OMALIZUMAB
     Route: 058
     Dates: start: 20171123
  17. XOLAIR [Suspect]
     Active Substance: OMALIZUMAB
     Route: 058
     Dates: start: 20180110
  18. XOLAIR [Suspect]
     Active Substance: OMALIZUMAB
     Route: 058
     Dates: start: 20180221
  19. XOLAIR [Suspect]
     Active Substance: OMALIZUMAB
     Route: 058
     Dates: start: 20180321
  20. XOLAIR [Suspect]
     Active Substance: OMALIZUMAB
     Route: 058
     Dates: start: 20180516
  21. XOLAIR [Suspect]
     Active Substance: OMALIZUMAB
     Route: 058
     Dates: start: 20180516
  22. XOLAIR [Suspect]
     Active Substance: OMALIZUMAB
     Route: 058
     Dates: start: 20180711
  23. XOLAIR [Suspect]
     Active Substance: OMALIZUMAB
     Route: 058
     Dates: start: 20180905
  24. XOLAIR [Suspect]
     Active Substance: OMALIZUMAB
     Route: 058
  25. XOLAIR [Suspect]
     Active Substance: OMALIZUMAB
     Route: 058
     Dates: start: 20181031
  26. XOLAIR [Suspect]
     Active Substance: OMALIZUMAB
     Route: 058
     Dates: start: 20181231
  27. XOLAIR [Suspect]
     Active Substance: OMALIZUMAB
     Dosage: RECEIVED TWO DAYS EARLY
     Route: 058
     Dates: start: 20190123
  28. XOLAIR [Suspect]
     Active Substance: OMALIZUMAB
     Route: 058
     Dates: start: 20190502
  29. XOLAIR [Suspect]
     Active Substance: OMALIZUMAB
     Route: 058
     Dates: start: 20190320
  30. XOLAIR [Suspect]
     Active Substance: OMALIZUMAB
     Route: 058
     Dates: start: 20190807
  31. XOLAIR [Suspect]
     Active Substance: OMALIZUMAB
     Route: 058
     Dates: start: 20191002
  32. XOLAIR [Suspect]
     Active Substance: OMALIZUMAB
     Route: 058
  33. XOLAIR [Suspect]
     Active Substance: OMALIZUMAB
     Route: 058
     Dates: start: 20160912
  34. XOLAIR [Suspect]
     Active Substance: OMALIZUMAB
     Route: 058
     Dates: start: 20190220
  35. XOLAIR [Suspect]
     Active Substance: OMALIZUMAB
     Route: 058
     Dates: start: 20190502
  36. XOLAIR [Suspect]
     Active Substance: OMALIZUMAB
     Route: 058
     Dates: start: 20150319
  37. XOLAIR [Suspect]
     Active Substance: OMALIZUMAB
     Route: 058
     Dates: start: 20160912
  38. XOLAIR [Suspect]
     Active Substance: OMALIZUMAB
     Route: 058
     Dates: start: 20210506
  39. XOLAIR [Suspect]
     Active Substance: OMALIZUMAB
     Route: 058
  40. XOLAIR [Suspect]
     Active Substance: OMALIZUMAB
     Route: 058
  41. XOLAIR [Suspect]
     Active Substance: OMALIZUMAB
     Route: 058
  42. XOLAIR [Suspect]
     Active Substance: OMALIZUMAB
     Route: 058
  43. XOLAIR [Suspect]
     Active Substance: OMALIZUMAB
     Route: 058
  44. XOLAIR [Suspect]
     Active Substance: OMALIZUMAB
     Route: 058
  45. XOLAIR [Suspect]
     Active Substance: OMALIZUMAB
     Route: 058
  46. XOLAIR [Suspect]
     Active Substance: OMALIZUMAB
     Route: 058
  47. XOLAIR [Suspect]
     Active Substance: OMALIZUMAB
     Route: 058
  48. XOLAIR [Suspect]
     Active Substance: OMALIZUMAB
     Route: 058
  49. XOLAIR [Suspect]
     Active Substance: OMALIZUMAB
     Route: 058
  50. XOLAIR [Suspect]
     Active Substance: OMALIZUMAB
     Route: 058
  51. XOLAIR [Suspect]
     Active Substance: OMALIZUMAB
     Route: 058
  52. XOLAIR [Suspect]
     Active Substance: OMALIZUMAB
     Route: 058
  53. XOLAIR [Suspect]
     Active Substance: OMALIZUMAB
     Route: 058
  54. XOLAIR [Suspect]
     Active Substance: OMALIZUMAB
     Route: 058
  55. XOLAIR [Suspect]
     Active Substance: OMALIZUMAB
     Route: 058
  56. XOLAIR [Suspect]
     Active Substance: OMALIZUMAB
     Route: 058
  57. XOLAIR [Suspect]
     Active Substance: OMALIZUMAB
     Route: 058
  58. XOLAIR [Suspect]
     Active Substance: OMALIZUMAB
     Route: 058
  59. XOLAIR [Suspect]
     Active Substance: OMALIZUMAB
     Route: 058

REACTIONS (61)
  - Pruritus [Recovered/Resolved]
  - Pneumonia [Unknown]
  - Anaphylactic reaction [Recovered/Resolved]
  - Malaise [Recovered/Resolved]
  - Influenza [Unknown]
  - Chills [Unknown]
  - Hyperhidrosis [Unknown]
  - Chest discomfort [Not Recovered/Not Resolved]
  - Stress [Unknown]
  - Burning sensation [Unknown]
  - Eye infection [Recovered/Resolved]
  - Breast pain [Unknown]
  - Anxiety [Unknown]
  - Chest pain [Not Recovered/Not Resolved]
  - Eczema [Unknown]
  - Brain fog [Unknown]
  - Asthma [Unknown]
  - Sinus pain [Unknown]
  - Erythema [Unknown]
  - Lymphadenopathy [Unknown]
  - Abdominal discomfort [Unknown]
  - Blood pressure increased [Unknown]
  - Spinal pain [Unknown]
  - Breast pain [Unknown]
  - Rash erythematous [Unknown]
  - Influenza like illness [Recovered/Resolved]
  - Myalgia [Unknown]
  - Asthenia [Unknown]
  - Headache [Unknown]
  - Intervertebral disc disorder [Unknown]
  - Cyst [Unknown]
  - Arthritis [Unknown]
  - Eye discharge [Unknown]
  - Hypersensitivity [Unknown]
  - Injection site discomfort [Unknown]
  - Off label use [Unknown]
  - Inappropriate schedule of product administration [Unknown]
  - Weight decreased [Unknown]
  - Diarrhoea [Recovered/Resolved]
  - Abdominal pain [Recovered/Resolved]
  - Urticaria [Recovered/Resolved]
  - Influenza like illness [Recovered/Resolved]
  - Eye pain [Unknown]
  - Pain [Recovering/Resolving]
  - Injection site pain [Unknown]
  - Feeling hot [Unknown]
  - Nasopharyngitis [Unknown]
  - Asthma [Recovered/Resolved]
  - Drug ineffective [Unknown]
  - Cough [Unknown]
  - Nasal congestion [Unknown]
  - Reaction to colouring [Unknown]
  - Allergy to metals [Unknown]
  - Back pain [Unknown]
  - Arthralgia [Unknown]
  - Oropharyngeal pain [Unknown]
  - Fatigue [Unknown]
  - Thermal burn [Recovered/Resolved]
  - Dry skin [Unknown]
  - Eye swelling [Unknown]
  - Pain in extremity [Unknown]

NARRATIVE: CASE EVENT DATE: 20150317
